FAERS Safety Report 9693295 (Version 1)
Quarter: 2013Q4

REPORT INFORMATION
  Report Type: Spontaneous
  Country: US (occurrence: US)
  Receive Date: 20131118
  Receipt Date: 20131118
  Transmission Date: 20140711
  Serious: Yes (Hospitalization)
  Sender: FDA-Public Use
  Company Number: US-009507513-1311USA005887

PATIENT
  Age: 90 Year
  Sex: Male

DRUGS (1)
  1. OXYTROL FOR WOMEN [Suspect]
     Indication: BLADDER SPASM
     Dosage: UNK UNK, UNKNOWN
     Route: 062

REACTIONS (6)
  - Hospitalisation [Unknown]
  - Blood urine present [Not Recovered/Not Resolved]
  - Bladder spasm [Not Recovered/Not Resolved]
  - Urinary tract infection [Unknown]
  - Staphylococcal infection [Unknown]
  - Off label use [Unknown]
